FAERS Safety Report 22099199 (Version 1)
Quarter: 2023Q1

REPORT INFORMATION
  Report Type: Spontaneous
  Country: RU (occurrence: None)
  Receive Date: 20230315
  Receipt Date: 20230315
  Transmission Date: 20230417
  Serious: Yes (Other)
  Sender: FDA-Public Use
  Company Number: RU-ROCHE-3306440

PATIENT
  Age: 45 Year
  Sex: Male

DRUGS (7)
  1. RITUXIMAB [Suspect]
     Active Substance: RITUXIMAB
     Indication: Non-Hodgkin^s lymphoma
     Dosage: RITUXIMAB 375 MG/M2 - 750 MG,
     Route: 042
     Dates: start: 20180830
  2. OBINUTUZUMAB [Suspect]
     Active Substance: OBINUTUZUMAB
     Indication: Non-Hodgkin^s lymphoma
     Dosage: DAY1
     Route: 042
     Dates: start: 20200708, end: 20200916
  3. CYCLOPHOSPHAMIDE [Suspect]
     Active Substance: CYCLOPHOSPHAMIDE
     Indication: Non-Hodgkin^s lymphoma
     Dosage: 750 MG/M2 - 1500 MG,
     Route: 042
     Dates: start: 20180830
  4. DOXORUBICIN [Suspect]
     Active Substance: DOXORUBICIN
     Indication: Non-Hodgkin^s lymphoma
     Dosage: 50 MG/M2 - 100 MG
     Route: 042
     Dates: start: 20180830
  5. VINCRISTINE [Suspect]
     Active Substance: VINCRISTINE
     Indication: Non-Hodgkin^s lymphoma
     Dosage: 1.4 MG/M2 - 2 MG,
     Route: 065
     Dates: start: 20180830
  6. PREDNISOLONE [Suspect]
     Active Substance: PREDNISOLONE
     Indication: Non-Hodgkin^s lymphoma
     Dosage: 50 MG/M2 - 70 MG.
     Route: 065
     Dates: start: 20180830
  7. FILGRASTIM [Concomitant]
     Active Substance: FILGRASTIM

REACTIONS (11)
  - Angioedema [Recovered/Resolved]
  - Follicular lymphoma [Unknown]
  - Vestibular ataxia [Unknown]
  - Peripheral sensorimotor neuropathy [Unknown]
  - Hypersensitivity [Unknown]
  - Pain in extremity [Unknown]
  - Peripheral sensory neuropathy [Unknown]
  - Tension headache [Unknown]
  - Ill-defined disorder [Unknown]
  - COVID-19 [Unknown]
  - Insomnia [Unknown]

NARRATIVE: CASE EVENT DATE: 20180920
